FAERS Safety Report 4315147-8 (Version None)
Quarter: 2004Q1

REPORT INFORMATION
  Report Type: 
  Country: None (occurrence: None)
  Receive Date: 20040310
  Receipt Date: 20040303
  Transmission Date: 20041129
  Serious: Yes (Hospitalization)
  Sender: FDA-Public Use
  Company Number: JP-GLAXOSMITHKLINE-B0325413A

PATIENT
  Age: 40 Year
  Sex: Male

DRUGS (4)
  1. RETROVIR [Suspect]
     Indication: HIV INFECTION
     Dosage: 200MG TWICE PER DAY
     Route: 048
     Dates: start: 19981203, end: 20040206
  2. EPIVIR [Suspect]
     Indication: HIV INFECTION
     Dosage: 150MG TWICE PER DAY
     Route: 048
     Dates: start: 19981101, end: 20040206
  3. VIRACEPT [Suspect]
     Indication: HIV INFECTION
     Dosage: 1000MG TWICE PER DAY
     Route: 048
     Dates: start: 19981203, end: 20040206
  4. URSO [Concomitant]
     Dosage: 100MG THREE TIMES PER DAY
     Route: 048
     Dates: end: 20040206

REACTIONS (1)
  - INTRA-ABDOMINAL HAEMORRHAGE [None]
